FAERS Safety Report 9422662 (Version 1)
Quarter: 2013Q3

REPORT INFORMATION
  Report Type: Spontaneous
  Country: BR (occurrence: BR)
  Receive Date: 20130726
  Receipt Date: 20130726
  Transmission Date: 20140515
  Serious: Yes (Life-Threatening, Hospitalization, Other)
  Sender: FDA-Public Use
  Company Number: BR-PFIZER INC-2013217181

PATIENT
  Age: 71 Year
  Sex: Male

DRUGS (2)
  1. LYRICA [Suspect]
     Dosage: 1 CAPSULE OF 150 MG, 2X/DAY
     Route: 048
     Dates: start: 20100303
  2. FRONTAL [Suspect]
     Indication: SLEEP DISORDER
     Dosage: 1 TABLET OF 2 MG, 2X/DAY
     Route: 048

REACTIONS (4)
  - Metastases to lung [Unknown]
  - Metastases to chest wall [Unknown]
  - Respiratory failure [Not Recovered/Not Resolved]
  - Tachycardia [Not Recovered/Not Resolved]
